FAERS Safety Report 11340144 (Version 3)
Quarter: 2015Q3

REPORT INFORMATION
  Report Type: Spontaneous
  Country: US (occurrence: US)
  Receive Date: 20150805
  Receipt Date: 20150904
  Transmission Date: 20151125
  Serious: Yes (Hospitalization, Other)
  Sender: FDA-Public Use
  Company Number: US-TEVA-582465USA

PATIENT
  Age: 38 Year
  Sex: Female

DRUGS (6)
  1. PROVIGIL [Suspect]
     Active Substance: MODAFINIL
     Indication: FATIGUE
     Route: 065
     Dates: start: 2005
  2. PROVIGIL [Suspect]
     Active Substance: MODAFINIL
     Indication: SEDATION
     Dosage: 300 MILLIGRAM DAILY;
     Route: 065
     Dates: start: 2007
  3. PROVIGIL [Suspect]
     Active Substance: MODAFINIL
     Route: 065
     Dates: start: 2014
  4. ZOLPIDEM [Concomitant]
     Active Substance: ZOLPIDEM\ZOLPIDEM TARTRATE
  5. PROVIGIL [Suspect]
     Active Substance: MODAFINIL
     Indication: DEPRESSION
     Route: 065
     Dates: start: 2012
  6. ABILIFY [Concomitant]
     Active Substance: ARIPIPRAZOLE

REACTIONS (26)
  - Inner ear infarction [Unknown]
  - Activities of daily living impaired [Unknown]
  - Speech disorder [Unknown]
  - Hypoaesthesia [Unknown]
  - Depression [Unknown]
  - Labyrinthitis [Unknown]
  - Inner ear disorder [Unknown]
  - Deafness [Unknown]
  - Arthralgia [Unknown]
  - Nervous system disorder [Unknown]
  - Condition aggravated [Unknown]
  - Motor dysfunction [Unknown]
  - Drug ineffective [Unknown]
  - Inner ear inflammation [Unknown]
  - Paraesthesia [Unknown]
  - Fatigue [Unknown]
  - Thinking abnormal [Unknown]
  - Dyspnoea [Unknown]
  - Sinusitis [Unknown]
  - Somnolence [Unknown]
  - Hallucination, auditory [Unknown]
  - Tinnitus [Unknown]
  - Tremor [Recovered/Resolved]
  - Hospitalisation [Unknown]
  - Chest pain [Unknown]
  - Gait disturbance [Unknown]

NARRATIVE: CASE EVENT DATE: 2008
